FAERS Safety Report 6741115-2 (Version None)
Quarter: 2010Q2

REPORT INFORMATION
  Report Type: 
  Country: None (occurrence: None)
  Receive Date: 20100526
  Receipt Date: 20100521
  Transmission Date: 20101027
  Serious: Yes (Other)
  Sender: FDA-Public Use
  Company Number: FR-JNJFOC-20090707696

PATIENT

DRUGS (1)
  1. IONSYS [Suspect]
     Indication: DRUG USE FOR UNKNOWN INDICATION
     Route: 044

REACTIONS (2)
  - DEVICE FAILURE [None]
  - OVERDOSE [None]
